FAERS Safety Report 4757108-0 (Version None)
Quarter: 2005Q3

REPORT INFORMATION
  Report Type: 
  Country: None (occurrence: None)
  Receive Date: 20050829
  Receipt Date: 20050819
  Transmission Date: 20060218
  Serious: Yes (Other)
  Sender: FDA-Public Use
  Company Number: ERP05000124

PATIENT
  Age: 84 Year
  Sex: Female

DRUGS (2)
  1. ACTOKIT (RISEDRONATE SODIUIM 35 MG, CALCIUM (CARBONATE 1250 MG)TABLET, [Suspect]
     Indication: OSTEOPOROSIS
     Dosage: 1 TABLET , ORAL
     Route: 048
     Dates: start: 20050504, end: 20050801
  2. PREDNISONE [Concomitant]

REACTIONS (1)
  - CONSTIPATION [None]
